FAERS Safety Report 8478025-9 (Version None)
Quarter: 2012Q2

REPORT INFORMATION
  Report Type: 
  Country: None (occurrence: None)
  Receive Date: 20120625
  Receipt Date: 20120612
  Transmission Date: 20120825
  Serious: Yes (Death, Hospitalization)
  Sender: FDA-Public Use
  Company Number: US-AGG-06-2012-0496

PATIENT
  Age: 73 Year
  Sex: Male

DRUGS (5)
  1. TIROFIBAN HYDROCHLORIDE [Suspect]
     Indication: ACUTE MYOCARDIAL INFARCTION
     Dosage: 25UG/KG X 1, 1 X A DAY INTRAVENOUS BOLUS
     Route: 040
  2. CLODIDOGREL [Concomitant]
  3. TIROFIBAN HYDROCHLORIDE [Suspect]
     Indication: ACUTE MYOCARDIAL INFARCTION
     Dosage: 0.15UG/KG X 1, 1 X A MINUTE INTRAVENOUS
     Route: 042
  4. ASPIRIN [Concomitant]
  5. HEPARIN [Concomitant]

REACTIONS (2)
  - HAEMOPTYSIS [None]
  - PULMONARY ALVEOLAR HAEMORRHAGE [None]
